FAERS Safety Report 8836877 (Version 2)
Quarter: 2012Q4

REPORT INFORMATION
  Report Type: 
  Country: IT (occurrence: IT)
  Receive Date: 20121012
  Receipt Date: 20121017
  Transmission Date: 20130627
  Serious: Yes (Hospitalization, Other)
  Sender: FDA-Public Use
  Company Number: IT-PFIZER INC-2012252671

PATIENT
  Age: 53 Year
  Sex: Male

DRUGS (2)
  1. XANAX [Suspect]
     Dosage: UNK
     Route: 048
     Dates: start: 20071001, end: 20120901
  2. DEPAKIN CHRONO [Suspect]
     Dosage: UNK
     Route: 048
     Dates: start: 20071001, end: 20120901

REACTIONS (3)
  - Psychomotor hyperactivity [Unknown]
  - Personality disorder [Unknown]
  - Alcoholism [Unknown]
